FAERS Safety Report 15790023 (Version 2)
Quarter: 2019Q1

REPORT INFORMATION
  Report Type: Spontaneous
  Country: JP (occurrence: JP)
  Receive Date: 20190104
  Receipt Date: 20190115
  Transmission Date: 20190417
  Serious: Yes (Hospitalization, Other)
  Sender: FDA-Public Use
  Company Number: JP-BRACCO-2018JP06665

PATIENT
  Age: 69 Year
  Sex: Male

DRUGS (1)
  1. PROHANCE [Suspect]
     Active Substance: GADOTERIDOL
     Indication: NUCLEAR MAGNETIC RESONANCE IMAGING
     Dosage: 17 ML, SINGLE
     Route: 042
     Dates: start: 20181226, end: 20181226

REACTIONS (1)
  - Anaphylactic reaction [Recovered/Resolved]

NARRATIVE: CASE EVENT DATE: 20181226
